FAERS Safety Report 25359843 (Version 3)
Quarter: 2025Q3

REPORT INFORMATION
  Report Type: Report from Study
  Country: CA (occurrence: CA)
  Receive Date: 20250526
  Receipt Date: 20250810
  Transmission Date: 20251021
  Serious: Yes (Other)
  Sender: ALEXION PHARMACEUTICALS
  Company Number: CA-AstraZeneca-CH-00875789A

PATIENT
  Sex: Female

DRUGS (7)
  1. OLAPARIB [Suspect]
     Active Substance: OLAPARIB
     Indication: Ovarian cancer
     Dosage: 100 MILLIGRAM, BID
     Dates: start: 20231121
  2. SYNTHROID [Concomitant]
     Active Substance: LEVOTHYROXINE SODIUM
     Route: 065
  3. RANITIDINE [Concomitant]
     Active Substance: RANITIDINE
     Route: 065
  4. DIVALPROEX SODIUM [Concomitant]
     Active Substance: DIVALPROEX SODIUM
     Route: 065
  5. VALSARTAN [Concomitant]
     Active Substance: VALSARTAN
     Route: 065
  6. CITALOPRAM [Concomitant]
     Active Substance: CITALOPRAM
     Route: 065
  7. CELEBREX [Concomitant]
     Active Substance: CELECOXIB
     Route: 065

REACTIONS (8)
  - Renal impairment [Unknown]
  - Renal failure [Unknown]
  - Treatment delayed [Unknown]
  - Platelet count increased [Unknown]
  - Blood creatinine abnormal [Unknown]
  - Urine analysis abnormal [Unknown]
  - Full blood count abnormal [Unknown]
  - Drug ineffective [Unknown]
